FAERS Safety Report 26192889 (Version 1)
Quarter: 2025Q4

REPORT INFORMATION
  Report Type: Report from Study
  Country: US (occurrence: US)
  Receive Date: 20251223
  Receipt Date: 20251223
  Transmission Date: 20260118
  Serious: Yes (Death, Hospitalization, Other)
  Sender: ELI LILLY AND COMPANY
  Company Number: US-ELI_LILLY_AND_COMPANY-US202512026289

PATIENT
  Age: 52 Year
  Sex: Female

DRUGS (7)
  1. VERZENIO [Suspect]
     Active Substance: ABEMACICLIB
     Indication: Product used for unknown indication
     Dosage: 150 MG, BID (ONE DAY)
     Route: 065
     Dates: start: 202406
  2. VERZENIO [Suspect]
     Active Substance: ABEMACICLIB
     Dosage: 150 MG, DAILY (NEXT DAY)
     Route: 065
     Dates: start: 202406
  3. VERZENIO [Suspect]
     Active Substance: ABEMACICLIB
     Dosage: 150 MG, BID
     Route: 065
     Dates: end: 202507
  4. ARIMIDEX [Concomitant]
     Active Substance: ANASTROZOLE
     Indication: Product used for unknown indication
  5. FASLODEX [Concomitant]
     Active Substance: FULVESTRANT
     Indication: Product used for unknown indication
  6. GOSERELIN [Concomitant]
     Active Substance: GOSERELIN
     Indication: Product used for unknown indication
  7. ZOMETA [Concomitant]
     Active Substance: ZOLEDRONIC ACID
     Indication: Product used for unknown indication

REACTIONS (14)
  - Multiple organ dysfunction syndrome [Fatal]
  - Escherichia infection [Unknown]
  - Malignant neoplasm progression [Recovering/Resolving]
  - Inappropriate schedule of product administration [Unknown]
  - Intra-abdominal fluid collection [Unknown]
  - Pain [Unknown]
  - Fluid intake reduced [Unknown]
  - Hypophagia [Unknown]
  - Pharyngeal ulceration [Unknown]
  - Mucosal inflammation [Unknown]
  - Drug ineffective [Unknown]
  - Stomatitis [Unknown]
  - Fatigue [Unknown]
  - Diarrhoea [Unknown]

NARRATIVE: CASE EVENT DATE: 20240601
